FAERS Safety Report 5087255-8 (Version None)
Quarter: 2006Q3

REPORT INFORMATION
  Report Type: 
  Country: None (occurrence: None)
  Receive Date: 20060821
  Receipt Date: 20060808
  Transmission Date: 20061208
  Serious: Yes (Hospitalization, Other)
  Sender: FDA-Public Use
  Company Number: HQWYE412114AUG06

PATIENT
  Age: 47 Year
  Sex: Female

DRUGS (1)
  1. LOETTE (LEVONORGESTREL/ETHINYL ESTRADIOL) [Suspect]
     Indication: ORAL CONTRACEPTION

REACTIONS (1)
  - JUGULAR VEIN THROMBOSIS [None]
